FAERS Safety Report 6367115-2 (Version None)
Quarter: 2009Q3

REPORT INFORMATION
  Report Type: 
  Country: None (occurrence: None)
  Receive Date: 20090921
  Receipt Date: 20090819
  Transmission Date: 20100115
  Serious: No
  Sender: FDA-Public Use
  Company Number: US-BAYER-200926450NA

PATIENT
  Age: 34 Year
  Sex: Female
  Weight: 48 kg

DRUGS (2)
  1. YAZ [Suspect]
     Indication: PREMENSTRUAL SYNDROME
     Route: 048
     Dates: start: 20090607, end: 20090717
  2. MULTI-VITAMINS [Concomitant]

REACTIONS (5)
  - DECREASED APPETITE [None]
  - MENORRHAGIA [None]
  - METRORRHAGIA [None]
  - NIGHT SWEATS [None]
  - WEIGHT DECREASED [None]
